FAERS Safety Report 4865500-9 (Version None)
Quarter: 2005Q4

REPORT INFORMATION
  Report Type: 
  Country: None (occurrence: None)
  Receive Date: 20051223
  Receipt Date: 20050421
  Transmission Date: 20060501
  Serious: Yes (Other)
  Sender: FDA-Public Use
  Company Number: JP-ROCHE-402749

PATIENT
  Age: 73 Year
  Sex: Female
  Weight: 47 kg

DRUGS (9)
  1. TAMIFLU [Suspect]
     Indication: INFLUENZA
     Route: 048
     Dates: start: 20050225, end: 20050225
  2. TAMIFLU [Suspect]
     Route: 048
     Dates: start: 20050226, end: 20050301
  3. CYANOCOBALAMIN [Concomitant]
     Route: 048
     Dates: start: 20050426
  4. NEUQUINON [Concomitant]
     Route: 048
     Dates: start: 20041127
  5. JUVELA N [Concomitant]
     Route: 048
     Dates: start: 20040330
  6. BLOPRESS [Concomitant]
     Dosage: THERAPY START DATE REPORTED AS: BEFORE 18 APRIL 2003.
     Route: 048
  7. ALFAROL [Concomitant]
     Dosage: THERAPY START DATE REPORTED AS: BEFORE 30 APRIL 2003.
     Route: 048
  8. SELBEX [Concomitant]
     Route: 048
     Dates: start: 20050225, end: 20050301
  9. MEDICON [Concomitant]
     Route: 048
     Dates: start: 20050225, end: 20050301

REACTIONS (2)
  - RETINAL HAEMORRHAGE [None]
  - VISUAL DISTURBANCE [None]
